FAERS Safety Report 9158791 (Version 2)
Quarter: 2013Q2

REPORT INFORMATION
  Report Type: Spontaneous
  Country: US (occurrence: US)
  Receive Date: 20130110
  Receipt Date: 20130422
  Transmission Date: 20140414
  Serious: Yes (Other)
  Sender: FDA-Public Use
  Company Number: US-RB-044918-12

PATIENT
  Age: 0 None
  Sex: Female
  Weight: 1.96 kg

DRUGS (3)
  1. SUBUTEX [Suspect]
     Indication: DRUG DEPENDENCE
     Route: 064
     Dates: start: 201103, end: 20111115
  2. SUBUTEX [Suspect]
     Route: 063
     Dates: start: 20111116, end: 20120115
  3. BACTRIM [Suspect]
     Indication: PERINEPHRIC COLLECTION
     Dosage: TAKEN NIGHTLY
     Route: 048
     Dates: start: 201205, end: 201208

REACTIONS (10)
  - Foetal exposure during pregnancy [Recovered/Resolved]
  - Premature baby [Recovered/Resolved]
  - Low birth weight baby [Unknown]
  - Respiratory disorder neonatal [Recovered/Resolved]
  - Exposure during breast feeding [Recovered/Resolved]
  - Gastrooesophageal reflux disease [Recovered/Resolved]
  - Milk allergy [Not Recovered/Not Resolved]
  - Neonatal disorder [Recovered/Resolved]
  - Perinephric collection [Not Recovered/Not Resolved]
  - Rash neonatal [Recovered/Resolved]
